FAERS Safety Report 6208258-3 (Version None)
Quarter: 2009Q2

REPORT INFORMATION
  Report Type: 
  Country: None (occurrence: None)
  Receive Date: 20090522
  Receipt Date: 20090514
  Transmission Date: 20091009
  Serious: Yes (Other)
  Sender: FDA-Public Use
  Company Number: ADE2009-0614

PATIENT
  Age: 64 Year
  Sex: Male

DRUGS (3)
  1. CEFTRIAXONE [Suspect]
     Indication: AORTITIS
     Dosage: 2G, Q12H, IV
     Route: 042
  2. CEFTRIAXONE [Suspect]
     Indication: ENTEROCOCCAL INFECTION
     Dosage: 2G, Q12H, IV
     Route: 042
  3. AMOXICILLIN [Concomitant]

REACTIONS (5)
  - ABDOMINAL PAIN [None]
  - BLOOD BILIRUBIN INCREASED [None]
  - CHOLELITHIASIS [None]
  - HEPATIC ENZYME INCREASED [None]
  - TREATMENT FAILURE [None]
